FAERS Safety Report 8462187-3 (Version None)
Quarter: 2012Q2

REPORT INFORMATION
  Report Type: 
  Country: None (occurrence: None)
  Receive Date: 20120625
  Receipt Date: 20120618
  Transmission Date: 20120825
  Serious: Yes (Hospitalization, Other)
  Sender: FDA-Public Use
  Company Number: PHHY2012BR053474

PATIENT
  Sex: Female
  Weight: 61 kg

DRUGS (10)
  1. DIOVAN [Suspect]
     Indication: HYPERTENSION
     Dosage: 80 MG
  2. ASPIRIN [Concomitant]
  3. DIOVAN HCT [Suspect]
     Dosage: 80/12.5 MG
  4. CLOPIDOGREL BISULFATE [Concomitant]
     Dosage: 1 DF, 75 MG, DAILY
     Route: 048
  5. DIOVAN [Suspect]
     Dosage: 160 MG, DAILY
     Route: 048
  6. DILTIAZEM [Concomitant]
     Indication: ANGINA PECTORIS
     Dosage: 60 MG,(ONE TABLET IN THE MORNING AND ONE TABLET IN THE AFTERNOON)
     Route: 048
  7. DIOVAN [Suspect]
     Dosage: 160 MG, BID (ONE AT MORNING AND ONE AT NIGHT)
  8. DIOVAN HCT [Suspect]
     Indication: HYPERTENSION
     Dosage: 80 MG, VALS (HYDROCHLOROTHIAZIDE UKNOWN)
  9. DIOVAN [Suspect]
     Dosage: 160 MG, DAILY
     Route: 048
  10. HYDROCHLOROTHIAZIDE [Concomitant]

REACTIONS (12)
  - NAUSEA [None]
  - DRUG INEFFECTIVE [None]
  - HYPERTENSION [None]
  - VOMITING [None]
  - OEDEMA PERIPHERAL [None]
  - DECREASED APPETITE [None]
  - CHOLELITHIASIS [None]
  - NERVOUSNESS [None]
  - WEIGHT DECREASED [None]
  - BACK PAIN [None]
  - CAROTID ARTERY OCCLUSION [None]
  - HEART RATE INCREASED [None]
